FAERS Safety Report 12545078 (Version 5)
Quarter: 2016Q4

REPORT INFORMATION
  Report Type: Report from Study
  Country: US (occurrence: US)
  Receive Date: 20160711
  Receipt Date: 20161206
  Transmission Date: 20170207
  Serious: Yes (Other)
  Sender: FDA-Public Use
  Company Number: US-JNJFOC-20160607066

PATIENT
  Age: 78 Year
  Sex: Male

DRUGS (8)
  1. ZYDELIG [Concomitant]
     Active Substance: IDELALISIB
     Route: 065
  2. IMBRUVICA [Suspect]
     Active Substance: IBRUTINIB
     Indication: WALDENSTROM^S MACROGLOBULINAEMIA
     Route: 048
     Dates: start: 20161105
  3. ALLOPURINOL. [Concomitant]
     Active Substance: ALLOPURINOL
  4. HYDROCHLOROTHIAZIDE. [Concomitant]
     Active Substance: HYDROCHLOROTHIAZIDE
  5. PREDNISONE. [Concomitant]
     Active Substance: PREDNISONE
  6. COUMADIN [Concomitant]
     Active Substance: WARFARIN SODIUM
  7. IMBRUVICA [Suspect]
     Active Substance: IBRUTINIB
     Indication: WALDENSTROM^S MACROGLOBULINAEMIA
     Route: 048
     Dates: start: 20160529
  8. REVLIMID [Concomitant]
     Active Substance: LENALIDOMIDE

REACTIONS (6)
  - Peripheral swelling [Unknown]
  - Inappropriate schedule of drug administration [Unknown]
  - Off label use [Unknown]
  - Psoriasis [Unknown]
  - Incorrect dose administered [Unknown]
  - Skin infection [Unknown]

NARRATIVE: CASE EVENT DATE: 2016
